FAERS Safety Report 9177778 (Version 1)
Quarter: 2012Q4

REPORT INFORMATION
  Report Type: 
  Country: US (occurrence: US)
  Receive Date: 20121009
  Receipt Date: 20121009
  Transmission Date: 20130627
  Serious: Yes (Death, Other)
  Sender: FDA-Public Use
  Company Number: US-RB-045198-12

PATIENT
  Age: 38 Year
  Sex: Male

DRUGS (2)
  1. SUBOXONE TABLET [Suspect]
     Indication: PRODUCT USED FOR UNKNOWN INDICATION
     Dosage: Dosage details not provided
     Route: 065
  2. ETHANOL [Suspect]
     Indication: PRODUCT USED FOR UNKNOWN INDICATION
     Dosage: Dosage details not provided
     Route: 065

REACTIONS (7)
  - Cardiac arrest [Fatal]
  - Arrhythmia [Fatal]
  - Convulsion [Fatal]
  - Miosis [Fatal]
  - Vomiting [Fatal]
  - Pyrexia [Fatal]
  - Tachycardia [Fatal]
